FAERS Safety Report 16609366 (Version 2)
Quarter: 2019Q3

REPORT INFORMATION
  Report Type: Spontaneous
  Country: DE (occurrence: DE)
  Receive Date: 20190722
  Receipt Date: 20190816
  Transmission Date: 20191004
  Serious: Yes (Other)
  Sender: FDA-Public Use
  Company Number: DE-GLAXOSMITHKLINE-DE2019GSK115002

PATIENT
  Age: 43 Year
  Sex: Male
  Weight: 73 kg

DRUGS (4)
  1. CEFUROXIM AXETIL [Suspect]
     Active Substance: CEFUROXIME AXETIL
     Dosage: UNK, 2X1
     Route: 048
     Dates: start: 20130129
  2. CEFPODOXIM [Suspect]
     Active Substance: CEFPODOXIME PROXETIL
     Indication: TRACHEITIS
     Dosage: UNK
     Route: 048
     Dates: start: 20130319
  3. CEFUROXIM AXETIL [Suspect]
     Active Substance: CEFUROXIME AXETIL
     Indication: INFLUENZA
     Dosage: UNK , 1 DOSAGE FORMS,12 HR
     Route: 048
     Dates: start: 20130218
  4. CEFPODOXIM [Suspect]
     Active Substance: CEFPODOXIME PROXETIL
     Indication: LARYNGITIS

REACTIONS (23)
  - Muscular weakness [Not Recovered/Not Resolved]
  - Myalgia [Not Recovered/Not Resolved]
  - Appetite disorder [Unknown]
  - Weight decreased [Recovering/Resolving]
  - Hyperaesthesia [Unknown]
  - Gait disturbance [Not Recovered/Not Resolved]
  - Adverse reaction [Not Recovered/Not Resolved]
  - Feeling abnormal [Unknown]
  - Photopsia [Not Recovered/Not Resolved]
  - Impaired work ability [Not Recovered/Not Resolved]
  - Parosmia [Not Recovered/Not Resolved]
  - Pain [Unknown]
  - Depression [Not Recovered/Not Resolved]
  - Fine motor skill dysfunction [Not Recovered/Not Resolved]
  - Visual impairment [Not Recovered/Not Resolved]
  - Arthralgia [Not Recovered/Not Resolved]
  - Memory impairment [Not Recovered/Not Resolved]
  - Toothache [Unknown]
  - Dental discomfort [Unknown]
  - Retinal injury [Not Recovered/Not Resolved]
  - Auditory disorder [Not Recovered/Not Resolved]
  - Taste disorder [Not Recovered/Not Resolved]
  - Rash generalised [Unknown]

NARRATIVE: CASE EVENT DATE: 2013
